FAERS Safety Report 10150638 (Version 1)
Quarter: 2014Q2

REPORT INFORMATION
  Report Type: Spontaneous
  Country: CA (occurrence: CA)
  Receive Date: 20140502
  Receipt Date: 20140502
  Transmission Date: 20141212
  Serious: Yes (Hospitalization)
  Sender: FDA-Public Use
  Company Number: PHHY2014CA051305

PATIENT
  Age: 59 Year
  Sex: Male

DRUGS (1)
  1. PARACETAMOL [Suspect]

REACTIONS (4)
  - Unresponsive to stimuli [Unknown]
  - Metabolic acidosis [Unknown]
  - Coma scale abnormal [Unknown]
  - Overdose [Unknown]
